FAERS Safety Report 21908229 (Version 1)
Quarter: 2023Q1

REPORT INFORMATION
  Report Type: Spontaneous
  Country: US (occurrence: None)
  Receive Date: 20230124
  Receipt Date: 20230124
  Transmission Date: 20230418
  Serious: No
  Sender: FDA-Public Use
  Company Number: None

PATIENT
  Sex: 0

DRUGS (2)
  1. CHLORHEXIDINE GLUCONATE [Suspect]
     Active Substance: CHLORHEXIDINE GLUCONATE
     Indication: Preoperative care
     Dosage: FREQUENCY : ONCE;?
     Route: 061
     Dates: start: 20230117, end: 20230117
  2. 2% CHG Wipe 6 cloths [Concomitant]
     Dates: start: 20230117, end: 20230117

REACTIONS (3)
  - Application site rash [None]
  - Application site pruritus [None]
  - Drug hypersensitivity [None]

NARRATIVE: CASE EVENT DATE: 20230117
